FAERS Safety Report 21884889 (Version 2)
Quarter: 2023Q1

REPORT INFORMATION
  Report Type: Spontaneous
  Country: US (occurrence: US)
  Receive Date: 20230119
  Receipt Date: 20230331
  Transmission Date: 20230417
  Serious: No
  Sender: FDA-Public Use
  Company Number: US-AMGEN-USASP2023004982

PATIENT
  Age: 68 Year
  Sex: Female

DRUGS (1)
  1. KANJINTI [Suspect]
     Active Substance: TRASTUZUMAB-ANNS
     Indication: Breast cancer
     Dosage: 462 MILLIGRAM, Q3WK
     Route: 065
     Dates: start: 20200210

REACTIONS (1)
  - Gastric disorder [Unknown]

NARRATIVE: CASE EVENT DATE: 20221227
